FAERS Safety Report 8839008 (Version 1)
Quarter: 2012Q4

REPORT INFORMATION
  Report Type: Spontaneous
  Country: US (occurrence: None)
  Receive Date: 20121011
  Receipt Date: 20121011
  Transmission Date: 20130627
  Serious: No
  Sender: FDA-Public Use
  Company Number: None

PATIENT
  Age: 55 Year
  Sex: Female
  Weight: 109 kg

DRUGS (1)
  1. DABIGATRAN [Suspect]

REACTIONS (2)
  - Immunosuppressant drug level decreased [None]
  - Tremor [None]
